FAERS Safety Report 8123384-X (Version None)
Quarter: 2012Q1

REPORT INFORMATION
  Report Type: 
  Country: None (occurrence: None)
  Receive Date: 20120208
  Receipt Date: 20120207
  Transmission Date: 20120608
  Serious: Yes (Other)
  Sender: FDA-Public Use
  Company Number: US-PFIZER INC-2012033702

PATIENT
  Sex: Female
  Weight: 81.633 kg

DRUGS (3)
  1. HYDROCHLOROTHIAZIDE [Concomitant]
     Indication: DIURETIC THERAPY
     Dosage: 12.5 MG, DAILY
  2. DILANTIN [Suspect]
     Indication: CONVULSION
     Dosage: 125 MG, DAILY
     Route: 048
     Dates: start: 20080101, end: 20110701
  3. DILTIAZEM [Concomitant]
     Indication: HYPERTENSION
     Dosage: 120 MG, 2X/DAY

REACTIONS (1)
  - CONVULSION [None]
